FAERS Safety Report 20101645 (Version 1)
Quarter: 2021Q4

REPORT INFORMATION
  Report Type: Spontaneous
  Country: US (occurrence: US)
  Receive Date: 20211123
  Receipt Date: 20211123
  Transmission Date: 20220303
  Serious: Yes (Hospitalization, Disabling, Other)
  Sender: FDA-Public Use
  Company Number: US-TEVA-2021-US-1979729

PATIENT
  Age: 44 Year
  Sex: Female
  Weight: 61.23 kg

DRUGS (6)
  1. DOCETAXEL [Suspect]
     Active Substance: DOCETAXEL
     Indication: Breast cancer female
     Dosage: NUMBER OF CYCLE:06, FREQUENCY: EVERY THREE WEEKS (20 MG /1 QTY 133 AMT)
     Route: 042
     Dates: start: 20140227, end: 20140707
  2. CARBOPLATIN [Suspect]
     Active Substance: CARBOPLATIN
     Indication: Breast cancer female
     Dosage: NUMBER OF CYCLES 6, FREQUENCY EVERY THREE WEEKS,680 MG
     Route: 042
     Dates: start: 20140227, end: 20140707
  3. HERCEPTIN [Suspect]
     Active Substance: TRASTUZUMAB
     Indication: Breast cancer female
     Dosage: 384 MG,NUMBER OF CYCLE:06, FREQUENCY:EVERY THREE WEEKS
     Route: 042
     Dates: start: 20140227, end: 20140707
  4. NEULASTA [Suspect]
     Active Substance: PEGFILGRASTIM
     Dosage: 6 MG
     Route: 065
  5. XANAX [Concomitant]
     Active Substance: ALPRAZOLAM
     Route: 065
     Dates: start: 1997
  6. TOPIRAMATE [Concomitant]
     Active Substance: TOPIRAMATE
     Route: 065
     Dates: start: 20121112

REACTIONS (70)
  - Alopecia areata [Not Recovered/Not Resolved]
  - Madarosis [Not Recovered/Not Resolved]
  - Dyspnoea exertional [Not Recovered/Not Resolved]
  - Nausea [Not Recovered/Not Resolved]
  - Vomiting [Not Recovered/Not Resolved]
  - Hypervolaemia [Unknown]
  - Myalgia [Not Recovered/Not Resolved]
  - Peripheral swelling [Not Recovered/Not Resolved]
  - Neuropathy peripheral [Unknown]
  - Neutropenia [Unknown]
  - Thrombocytopenia [Unknown]
  - Immunosuppression [Unknown]
  - Pericardial effusion [Unknown]
  - Cardiac failure congestive [Unknown]
  - Lacrimation increased [Not Recovered/Not Resolved]
  - Visual impairment [Unknown]
  - Epistaxis [Recovered/Resolved]
  - Dysphagia [Recovered/Resolved]
  - Dyspnoea [Unknown]
  - Mobility decreased [Unknown]
  - Weight increased [Recovering/Resolving]
  - Dyspnoea paroxysmal nocturnal [Unknown]
  - Asthenia [Unknown]
  - Hypoaesthesia [Unknown]
  - Onychoclasis [Recovering/Resolving]
  - Paraesthesia [Unknown]
  - Loss of personal independence in daily activities [Unknown]
  - Skin tightness [Unknown]
  - Pleural effusion [Unknown]
  - Nail discolouration [Recovering/Resolving]
  - Diarrhoea [Not Recovered/Not Resolved]
  - Amenorrhoea [Unknown]
  - Arthralgia [Unknown]
  - Skin discolouration [Not Recovered/Not Resolved]
  - Fatigue [Unknown]
  - Dysuria [Unknown]
  - Urine abnormality [Unknown]
  - Decreased appetite [Unknown]
  - Oedema [Unknown]
  - Fluid retention [Unknown]
  - Anaemia [Not Recovered/Not Resolved]
  - Normocytic anaemia [Not Recovered/Not Resolved]
  - Gait inability [Unknown]
  - Blepharospasm [Unknown]
  - Myopia [Unknown]
  - Dry eye [Unknown]
  - Hypophagia [Unknown]
  - Dizziness [Unknown]
  - Rhinorrhoea [Unknown]
  - Rib fracture [Unknown]
  - Acne [Recovered/Resolved]
  - Nail dystrophy [Recovering/Resolving]
  - Decreased appetite [Unknown]
  - Weight decreased [Unknown]
  - Night sweats [Unknown]
  - Sinus disorder [Unknown]
  - Productive cough [Unknown]
  - Constipation [Unknown]
  - Back pain [Unknown]
  - Thirst [Unknown]
  - Menopause [Unknown]
  - Exercise tolerance decreased [Unknown]
  - Fall [Unknown]
  - Atrophic vulvovaginitis [Unknown]
  - Chest pain [Unknown]
  - Oropharyngeal pain [Recovered/Resolved]
  - Infusion site bruising [Unknown]
  - Skin laceration [Unknown]
  - Infusion site erythema [Unknown]
  - Infusion site pain [Unknown]

NARRATIVE: CASE EVENT DATE: 20140101
